FAERS Safety Report 4844511-3 (Version None)
Quarter: 2005Q4

REPORT INFORMATION
  Report Type: 
  Country: None (occurrence: None)
  Receive Date: 20051203
  Receipt Date: 20051128
  Transmission Date: 20060501
  Serious: Yes (Other)
  Sender: FDA-Public Use
  Company Number: PHEH2005US12933

PATIENT
  Age: 62 Year
  Sex: Male

DRUGS (1)
  1. ZOMETA [Suspect]
     Indication: RENAL CELL CARCINOMA STAGE UNSPECIFIED
     Dates: end: 20040504

REACTIONS (4)
  - BONE DISORDER [None]
  - NECROSIS [None]
  - OSTEONECROSIS [None]
  - PURULENT DISCHARGE [None]
